FAERS Safety Report 5301067-9 (Version None)
Quarter: 2007Q2

REPORT INFORMATION
  Report Type: 
  Country: None (occurrence: None)
  Receive Date: 20070418
  Receipt Date: 20070405
  Transmission Date: 20071010
  Serious: Yes (Other)
  Sender: FDA-Public Use
  Company Number: US-ELI_LILLY_AND_COMPANY-US200703000509

PATIENT
  Age: 67 Year
  Sex: Female

DRUGS (1)
  1. FORTEO [Suspect]
     Indication: OSTEOPOROSIS
     Dosage: 20 UG, DAILY (1/D)
     Dates: start: 20060101

REACTIONS (6)
  - ARTHRALGIA [None]
  - BONE DISORDER [None]
  - BONE LESION [None]
  - BONE SCAN ABNORMAL [None]
  - JOINT SWELLING [None]
  - NEOPLASM [None]
